FAERS Safety Report 6144172-X (Version None)
Quarter: 2009Q2

REPORT INFORMATION
  Report Type: 
  Country: None (occurrence: None)
  Receive Date: 20090406
  Receipt Date: 20090331
  Transmission Date: 20091009
  Serious: Yes (Hospitalization)
  Sender: FDA-Public Use
  Company Number: US-PFIZER INC-2006148286

PATIENT
  Sex: Male
  Weight: 81 kg

DRUGS (3)
  1. SUNITINIB MALATE [Suspect]
     Indication: PANCREATIC CARCINOMA
     Dosage: 25 MG, 1X/DAY
     Route: 048
     Dates: start: 20061031, end: 20061122
  2. CARBOPLATIN [Suspect]
     Indication: PANCREATIC CARCINOMA
     Dosage: 876 MG, CYCLIC: EVERY 3 WEEKS
     Route: 042
     Dates: start: 20061107, end: 20061107
  3. PACLITAXEL [Suspect]
     Indication: PANCREATIC CARCINOMA
     Dosage: 350 MG, CYCLIC: EVERY 3 WEEKS
     Route: 042
     Dates: start: 20061107, end: 20061107

REACTIONS (4)
  - ANAEMIA [None]
  - DISEASE PROGRESSION [None]
  - DISSEMINATED INTRAVASCULAR COAGULATION [None]
  - THROMBOCYTOPENIA [None]
